FAERS Safety Report 21947064 (Version 1)
Quarter: 2023Q1

REPORT INFORMATION
  Report Type: Spontaneous
  Country: US (occurrence: US)
  Receive Date: 20230202
  Receipt Date: 20230202
  Transmission Date: 20230418
  Serious: Yes (Other)
  Sender: FDA-Public Use
  Company Number: US-ORGANON-O2212USA001409

PATIENT
  Sex: Female
  Weight: 65.76 kg

DRUGS (1)
  1. NEXPLANON [Suspect]
     Active Substance: ETONOGESTREL
     Dosage: 1 IMPLANT OF 68 MG IN RIGHT UPPER ARM
     Route: 059
     Dates: start: 2019, end: 20221213

REACTIONS (2)
  - Device dislocation [Recovered/Resolved]
  - Device breakage [Recovered/Resolved]

NARRATIVE: CASE EVENT DATE: 20190101
